FAERS Safety Report 7073120-3 (Version None)
Quarter: 2010Q4

REPORT INFORMATION
  Report Type: 
  Country: None (occurrence: None)
  Receive Date: 20101029
  Receipt Date: 20100607
  Transmission Date: 20110411
  Serious: No
  Sender: FDA-Public Use
  Company Number: A0856897A

PATIENT
  Age: 81 Year
  Sex: Female
  Weight: 66.8 kg

DRUGS (6)
  1. ADVAIR DISKUS 100/50 [Suspect]
     Indication: ASTHMA
     Dosage: 1PUFF TWICE PER DAY
     Route: 055
     Dates: start: 20050101, end: 20100401
  2. LEVOXYL [Concomitant]
  3. OMEPRAZOLE [Concomitant]
  4. GLUCOSAMINE [Concomitant]
  5. CALCIUM [Concomitant]
  6. UNKNOWN DRUG [Concomitant]

REACTIONS (1)
  - HYPERTENSION [None]
